FAERS Safety Report 10479536 (Version 1)
Quarter: 2014Q3

REPORT INFORMATION
  Report Type: Spontaneous
  Country: GB (occurrence: GB)
  Receive Date: 20140927
  Receipt Date: 20140927
  Transmission Date: 20150326
  Serious: Yes (Other)
  Sender: FDA-Public Use
  Company Number: GB-DRREDDYS-GER/UKI/14/0043294

PATIENT
  Age: 18 Year
  Sex: Male

DRUGS (6)
  1. LUSTRAL [Suspect]
     Active Substance: SERTRALINE HYDROCHLORIDE
     Indication: OBSESSIVE-COMPULSIVE DISORDER
  2. SERTRALINE [Suspect]
     Active Substance: SERTRALINE HYDROCHLORIDE
  3. SERTRALINE [Suspect]
     Active Substance: SERTRALINE HYDROCHLORIDE
  4. LUSTRAL [Suspect]
     Active Substance: SERTRALINE HYDROCHLORIDE
  5. LUSTRAL [Suspect]
     Active Substance: SERTRALINE HYDROCHLORIDE
  6. SERTRALINE [Suspect]
     Active Substance: SERTRALINE HYDROCHLORIDE
     Indication: OBSESSIVE-COMPULSIVE DISORDER

REACTIONS (8)
  - Dysuria [Unknown]
  - Blood cholesterol increased [Unknown]
  - Urine output decreased [Unknown]
  - Malaise [Unknown]
  - Abnormal dreams [Unknown]
  - Micturition disorder [Unknown]
  - Gait disturbance [Unknown]
  - Urinary retention [Unknown]
